FAERS Safety Report 9654179 (Version 1)
Quarter: 2013Q4

REPORT INFORMATION
  Report Type: Spontaneous
  Country: US (occurrence: US)
  Receive Date: 20131029
  Receipt Date: 20131029
  Transmission Date: 20140711
  Serious: Yes (Other)
  Sender: FDA-Public Use
  Company Number: US-CUBIST PHARMACEUTICALS, INC.-2013CBST001021

PATIENT
  Sex: 0

DRUGS (2)
  1. CUBICIN [Suspect]
     Indication: INFECTION
     Dosage: UNK UNK, QD
     Route: 065
  2. ANTIBIOTIC [Concomitant]
     Indication: INFECTION
     Dosage: UNK, UNK, UNK
     Route: 065

REACTIONS (1)
  - Pulmonary toxicity [Unknown]
